FAERS Safety Report 6080408-1 (Version None)
Quarter: 2009Q1

REPORT INFORMATION
  Report Type: 
  Country: None (occurrence: None)
  Receive Date: 20090217
  Receipt Date: 20081219
  Transmission Date: 20090719
  Serious: Yes (Death)
  Sender: FDA-Public Use
  Company Number: CO-PFIZER INC-2008158137

PATIENT

DRUGS (7)
  1. LIPITOR [Suspect]
     Dosage: 10 MG, 1X/DAY
     Route: 048
     Dates: start: 20040819
  2. LIPITOR [Suspect]
     Route: 048
  3. OLMETEC [Suspect]
     Dosage: 20 MG, 1X/DAY
     Route: 048
     Dates: start: 20040801
  4. OLMETEC [Suspect]
     Route: 048
  5. GLIBENCLAMIDE [Concomitant]
     Dosage: 5 MG, 1X/DAY
  6. DIGOXIN [Concomitant]
     Dosage: 0.25 MG, UNK
  7. FUROSEMIDE [Concomitant]
     Dosage: 40 MG, 1X/DAY

REACTIONS (1)
  - DEATH [None]
